FAERS Safety Report 5158452-8 (Version None)
Quarter: 2006Q4

REPORT INFORMATION
  Report Type: 
  Country: None (occurrence: None)
  Receive Date: 20061128
  Receipt Date: 20061116
  Transmission Date: 20070319
  Serious: Yes (Hospitalization)
  Sender: FDA-Public Use
  Company Number: PHBS2006JP18023

PATIENT
  Age: 79 Year
  Sex: Male
  Weight: 67 kg

DRUGS (7)
  1. NEORAL [Suspect]
     Indication: RHEUMATOID ARTHRITIS
     Dosage: 50 MG, BID
     Route: 048
     Dates: start: 20060330, end: 20061012
  2. LOXONIN [Suspect]
     Indication: RHEUMATOID ARTHRITIS
     Dosage: 120 MG/DAY
     Route: 048
     Dates: start: 20061021
  3. HYPEN [Concomitant]
     Indication: RHEUMATOID ARTHRITIS
     Dosage: 2 DF/D
     Route: 048
     Dates: start: 20060330, end: 20061017
  4. SELBEX [Concomitant]
     Dosage: 150 MG/D
     Dates: start: 20061021
  5. AMLODIPINE BESYLATE [Concomitant]
     Dosage: 5 MG/D
     Route: 048
     Dates: start: 20061021
  6. PREDONINE [Concomitant]
     Indication: RHEUMATOID ARTHRITIS
     Dosage: 10 MG/D
     Route: 048
     Dates: start: 20061021
  7. MERISLON [Concomitant]
     Indication: MENIERE'S DISEASE
     Route: 048
     Dates: start: 20061021

REACTIONS (3)
  - NEUTROPENIA [None]
  - PLATELET COUNT DECREASED [None]
  - WHITE BLOOD CELL COUNT DECREASED [None]
